FAERS Safety Report 25069211 (Version 7)
Quarter: 2025Q2

REPORT INFORMATION
  Report Type: Spontaneous
  Country: US (occurrence: US)
  Receive Date: 20250312
  Receipt Date: 20250507
  Transmission Date: 20250716
  Serious: No
  Sender: PFIZER
  Company Number: US-PFIZER INC-202500048343

PATIENT
  Age: 12 Year
  Sex: Female
  Weight: 28.571 kg

DRUGS (6)
  1. GENOTROPIN [Suspect]
     Active Substance: SOMATROPIN
     Indication: Growth hormone deficiency
     Dosage: ALTERNATE 1.4 MG AND 1.6 MG, NIGHTLY 6 DAYS/WEEK (DAILY EFFECTIVE DOSE: 1.5 MG/DAY, DOSE IN INCREMEN
     Route: 058
  2. GENOTROPIN [Suspect]
     Active Substance: SOMATROPIN
     Indication: Short stature
     Dosage: ALTERNATE 1.4 MG AND 1.6 MG, NIGHTLY 6 DAYS/WEEK (DAILY EFFECTIVE DOSE: 1.5 MG/DAY, DOSE IN INCREMEN
     Route: 058
  3. GENOTROPIN [Suspect]
     Active Substance: SOMATROPIN
     Indication: Hypopituitarism
  4. CONCERTA [Concomitant]
     Active Substance: METHYLPHENIDATE HYDROCHLORIDE
     Dosage: 36 MG, DAILY
     Route: 048
  5. CLONIDINE [Concomitant]
     Active Substance: CLONIDINE
     Route: 048
  6. FLUOXETINE [Concomitant]
     Active Substance: FLUOXETINE HYDROCHLORIDE
     Dosage: 60 MG, DAILY

REACTIONS (3)
  - Device use error [Unknown]
  - Device material issue [Unknown]
  - Device breakage [Unknown]
